FAERS Safety Report 7843747-7 (Version None)
Quarter: 2011Q4

REPORT INFORMATION
  Report Type: 
  Country: None (occurrence: None)
  Receive Date: 20111025
  Receipt Date: 20111011
  Transmission Date: 20120403
  Serious: Yes (Other)
  Sender: FDA-Public Use
  Company Number: BG-CELGENEUS-022-C5013-11091755

PATIENT
  Sex: Male
  Weight: 89 kg

DRUGS (2)
  1. LENALIDOMIDE [Suspect]
     Dosage: 2.5 MILLIGRAM
     Route: 048
     Dates: start: 20110705, end: 20110726
  2. LENALIDOMIDE [Suspect]
     Dosage: 2.5 MILLIGRAM
     Route: 048
     Dates: start: 20101101

REACTIONS (1)
  - BLOOD POTASSIUM INCREASED [None]
